FAERS Safety Report 8983297 (Version 1)
Quarter: 2012Q4

REPORT INFORMATION
  Report Type: 
  Country: IT (occurrence: IT)
  Receive Date: 20121221
  Receipt Date: 20121221
  Transmission Date: 20130627
  Serious: Yes (Hospitalization)
  Sender: FDA-Public Use
  Company Number: IT-ABBOTT-12P-083-1019101-00

PATIENT
  Age: 12 Year
  Sex: Male

DRUGS (5)
  1. ADALIMUMAB [Suspect]
     Indication: CROHN^S DISEASE
     Route: 058
  2. ADALIMUMAB [Suspect]
  3. ADALIMUMAB [Suspect]
  4. INFLIXIMAB [Suspect]
     Indication: CROHN^S DISEASE
     Dates: end: 201105
  5. PREDNISOLONE [Concomitant]

REACTIONS (3)
  - Hypergammaglobulinaemia benign monoclonal [Unknown]
  - Crohn^s disease [Recovered/Resolved]
  - Drug ineffective [Unknown]
